FAERS Safety Report 23708262 (Version 2)
Quarter: 2024Q2

REPORT INFORMATION
  Report Type: Spontaneous
  Country: US (occurrence: US)
  Receive Date: 20240404
  Receipt Date: 20240506
  Transmission Date: 20240716
  Serious: Yes (Hospitalization)
  Sender: FDA-Public Use
  Company Number: US-THERATECHNOLOGIES INC.-2024-THE-IBA-000098

PATIENT

DRUGS (4)
  1. TROGARZO [Suspect]
     Active Substance: IBALIZUMAB-UIYK
     Indication: HIV infection
     Dosage: 800 MG, EVERY 2 WEEKS
     Route: 042
     Dates: start: 202101
  2. LENACAPAVIR [Concomitant]
     Active Substance: LENACAPAVIR
     Indication: Product used for unknown indication
     Route: 065
  3. SODIUM CHLORIDE [Concomitant]
     Active Substance: SODIUM CHLORIDE
     Indication: Product used for unknown indication
     Route: 065
  4. SODIUM CHLORIDE [Concomitant]
     Active Substance: SODIUM CHLORIDE
     Indication: Product used for unknown indication
     Dosage: 10 ML
     Route: 065

REACTIONS (3)
  - Hospitalisation [Unknown]
  - Hospitalisation [Unknown]
  - Hospitalisation [Unknown]

NARRATIVE: CASE EVENT DATE: 20240301
